FAERS Safety Report 9115144 (Version 1)
Quarter: 2013Q1

REPORT INFORMATION
  Report Type: Spontaneous
  Country: US (occurrence: US)
  Receive Date: 20130225
  Receipt Date: 20130225
  Transmission Date: 20140127
  Serious: No
  Sender: FDA-Public Use
  Company Number: US-PFIZER INC-2013068237

PATIENT
  Age: 80 Year
  Sex: Female

DRUGS (4)
  1. LIPITOR [Suspect]
     Indication: CARDIAC DISORDER
     Dosage: 10 MG, DAILY
     Dates: end: 2012
  2. LIPITOR [Suspect]
     Dosage: 10 MG, DAILY
     Dates: start: 201301
  3. ATORVASTATIN CALCIUM [Suspect]
     Indication: CARDIAC DISORDER
     Dosage: 10 MG, DAILY
     Dates: start: 2012
  4. NITROGLYCERIN [Concomitant]
     Indication: ANGINA PECTORIS
     Dosage: UNK, AS NEEDED

REACTIONS (2)
  - Swollen tongue [Unknown]
  - Headache [Unknown]
